FAERS Safety Report 5980325-9 (Version None)
Quarter: 2008Q4

REPORT INFORMATION
  Report Type: 
  Country: None (occurrence: None)
  Receive Date: 20081205
  Receipt Date: 20081127
  Transmission Date: 20090506
  Serious: Yes (Other)
  Sender: FDA-Public Use
  Company Number: PHHY2008AU28515

PATIENT
  Sex: Female

DRUGS (1)
  1. EXELON [Suspect]
     Indication: DEMENTIA
     Dosage: UNK
     Route: 062
     Dates: start: 20080729, end: 20081113

REACTIONS (3)
  - APPLICATION SITE IRRITATION [None]
  - CONDITION AGGRAVATED [None]
  - DERMATITIS CONTACT [None]
